FAERS Safety Report 8124599-7 (Version None)
Quarter: 2012Q1

REPORT INFORMATION
  Report Type: 
  Country: None (occurrence: None)
  Receive Date: 20120209
  Receipt Date: 20120112
  Transmission Date: 20120608
  Serious: Yes (Hospitalization)
  Sender: FDA-Public Use
  Company Number: US-BAYER-2012-004153

PATIENT
  Sex: Female

DRUGS (1)
  1. ADALAT CC [Suspect]

REACTIONS (4)
  - PAIN [None]
  - DISCOMFORT [None]
  - MALABSORPTION [None]
  - BLOOD PRESSURE INCREASED [None]
